APPROVED DRUG PRODUCT: BUSULFAN
Active Ingredient: BUSULFAN
Strength: 6MG/ML
Dosage Form/Route: INJECTABLE;INJECTION
Application: A215102 | Product #001
Applicant: EUGIA PHARMA SPECIALITIES LTD
Approved: Jun 25, 2024 | RLD: No | RS: No | Type: DISCN